FAERS Safety Report 10210761 (Version 1)
Quarter: 2014Q2

REPORT INFORMATION
  Report Type: Spontaneous
  Country: US (occurrence: None)
  Receive Date: 20140530
  Receipt Date: 20140530
  Transmission Date: 20141212
  Serious: Yes (Hospitalization)
  Sender: FDA-Public Use
  Company Number: None

PATIENT
  Age: 74 Year
  Sex: Male
  Weight: 93 kg

DRUGS (1)
  1. INTRON A [Suspect]
     Dosage: 21 MU
     Dates: end: 20140523

REACTIONS (6)
  - Dyspnoea [None]
  - Cough [None]
  - Bronchitis [None]
  - Fatigue [None]
  - Decreased activity [None]
  - Hypersomnia [None]
